FAERS Safety Report 8393611-2 (Version None)
Quarter: 2012Q2

REPORT INFORMATION
  Report Type: 
  Country: None (occurrence: None)
  Receive Date: 20120530
  Receipt Date: 20120522
  Transmission Date: 20120825
  Serious: Yes (Death, Congenital Anomaly)
  Sender: FDA-Public Use
  Company Number: IT-BIOGENIDEC-2011BI041083

PATIENT
  Age: 16 Week

DRUGS (1)
  1. TYSABRI [Suspect]
     Indication: RELAPSING-REMITTING MULTIPLE SCLEROSIS
     Route: 064
     Dates: start: 20090804, end: 20101213

REACTIONS (1)
  - TRISOMY 21 [None]
